FAERS Safety Report 18219373 (Version 1)
Quarter: 2020Q3

REPORT INFORMATION
  Report Type: Spontaneous
  Country: US (occurrence: US)
  Receive Date: 20200901
  Receipt Date: 20200901
  Transmission Date: 20201103
  Serious: Yes (Death, Hospitalization, Other)
  Sender: FDA-Public Use
  Company Number: US-PURDUE-USA-2020-0164025

PATIENT
  Age: 78 Year
  Sex: Male

DRUGS (1)
  1. OXYCONTIN [Suspect]
     Active Substance: OXYCODONE HYDROCHLORIDE
     Indication: NECK PAIN
     Dosage: 20 MG, UNK
     Route: 048

REACTIONS (19)
  - Sedation [Unknown]
  - Dry mouth [Unknown]
  - Anxiety [Unknown]
  - Constipation [Unknown]
  - Agitation [Unknown]
  - Confusional state [Unknown]
  - Fatigue [Unknown]
  - Quality of life decreased [Unknown]
  - Pancreatic carcinoma [Unknown]
  - Hyperhidrosis [Unknown]
  - Drug dependence [Unknown]
  - Jaundice cholestatic [Unknown]
  - Asthenia [Unknown]
  - Decreased appetite [Unknown]
  - Carbohydrate antigen 19-9 increased [Unknown]
  - Death [Fatal]
  - Acute kidney injury [Unknown]
  - Hallucination, visual [Unknown]
  - Pruritus [Unknown]

NARRATIVE: CASE EVENT DATE: 20141008
